FAERS Safety Report 7571609-1 (Version None)
Quarter: 2011Q2

REPORT INFORMATION
  Report Type: 
  Country: None (occurrence: None)
  Receive Date: 20110613
  Receipt Date: 20110607
  Transmission Date: 20111010
  Serious: Yes (Hospitalization)
  Sender: FDA-Public Use
  Company Number: 2010027240

PATIENT
  Sex: Female
  Weight: 48.9885 kg

DRUGS (22)
  1. ZEGERID (OMEPRAZOLE SODIUM) [Concomitant]
  2. XOPENEX [Concomitant]
  3. ALBUTEROL [Concomitant]
  4. TREANDA (BENDAMUSTINE) [Concomitant]
  5. ACIPHEX [Concomitant]
  6. VIVAGLOBIN (IMMUNE GLOBULIN SUBCUTANEOUS (HUMAN)) [Suspect]
     Indication: IMMUNODEFICIENCY COMMON VARIABLE
     Dosage: SEE IMAGE
     Route: 058
     Dates: start: 20110305
  7. VIVAGLOBIN (IMMUNE GLOBULIN SUBCUTANEOUS (HUMAN)) [Suspect]
     Indication: IMMUNODEFICIENCY COMMON VARIABLE
     Dosage: SEE IMAGE
     Route: 058
     Dates: start: 20100201
  8. RITUXAN [Concomitant]
  9. CLARITIN [Concomitant]
  10. VERAMYST (FLUTICASONE) [Concomitant]
  11. SYNTHROID [Concomitant]
  12. HYDROCORTONE [Concomitant]
  13. VIVAGLOBIIN (IMMUNE GLOBULIN SUBCUTANEOUS (HUMAN)) [Suspect]
  14. QVAR [Concomitant]
  15. DOMPERIDONE (DOMPERIDONE) [Concomitant]
  16. PROVENTIL [Concomitant]
  17. NASONEX [Concomitant]
  18. ZANTAC [Concomitant]
  19. VIVAGLOBIIN (IMMUNE GLOBULIN SUBCUTANEOUS (HUMAN)) [Suspect]
  20. PATANASE (OLOPATADINE) [Concomitant]
  21. CARAFATE [Concomitant]
  22. NEXIUM [Concomitant]

REACTIONS (9)
  - INFUSION SITE RASH [None]
  - CONDITION AGGRAVATED [None]
  - INFECTION [None]
  - BRONCHITIS [None]
  - HEADACHE [None]
  - INFUSION SITE ERYTHEMA [None]
  - ASTHMA [None]
  - INFUSION SITE PAIN [None]
  - SINUSITIS [None]
